FAERS Safety Report 5295250-9 (Version None)
Quarter: 2007Q2

REPORT INFORMATION
  Report Type: 
  Country: None (occurrence: None)
  Receive Date: 20070412
  Receipt Date: 20070404
  Transmission Date: 20071010
  Serious: Yes (Hospitalization)
  Sender: FDA-Public Use
  Company Number: RU-SHR-RU-2007-012214

PATIENT
  Age: 40 Year
  Sex: Female

DRUGS (1)
  1. YARINA (21) [Suspect]
     Dosage: 1 TAB(S), UNK
     Route: 048
     Dates: start: 20060812, end: 20061205

REACTIONS (3)
  - DROP ATTACKS [None]
  - PNEUMONIA [None]
  - PULMONARY EMBOLISM [None]
